FAERS Safety Report 12074045 (Version 5)
Quarter: 2016Q2

REPORT INFORMATION
  Report Type: Spontaneous
  Country: NO (occurrence: NO)
  Receive Date: 20160212
  Receipt Date: 20160420
  Transmission Date: 20160815
  Serious: Yes (Hospitalization, Disabling, Congenital Anomaly, Other)
  Sender: FDA-Public Use
  Company Number: PHHY2016NO017865

PATIENT
  Sex: Female

DRUGS (5)
  1. DICLOFENAC [Suspect]
     Active Substance: DICLOFENAC
     Indication: FOETAL EXPOSURE DURING PREGNANCY
     Dosage: MATERNAL DOSE: TID, FOR TWO DAYS (TOTAL 6 DOSES OF 50 MG FOR 2 DAYS)
     Route: 064
  2. MECILINAM [Suspect]
     Active Substance: AMDINOCILLIN
     Indication: FOETAL EXPOSURE DURING PREGNANCY
     Route: 064
  3. SYMBICORT [Suspect]
     Active Substance: BUDESONIDE\FORMOTEROL FUMARATE DIHYDRATE
     Indication: FOETAL EXPOSURE DURING PREGNANCY
     Route: 064
  4. PARACETAMOL SANDOZ [Suspect]
     Active Substance: ACETAMINOPHEN
     Indication: FOETAL EXPOSURE DURING PREGNANCY
     Dosage: MATERNAL DOSE: TID, FOR TWO DAYS
     Route: 064
  5. MORPHINE [Suspect]
     Active Substance: MORPHINE
     Indication: FOETAL EXPOSURE DURING PREGNANCY
     Dosage: MOTHER RECEIVED FOR 3 DAYS, UNK
     Route: 064

REACTIONS (13)
  - Face oedema [Recovered/Resolved]
  - Congenital pulmonary hypertension [Recovered/Resolved]
  - Tricuspid valve incompetence [Recovered/Resolved]
  - Foetal heart rate abnormal [Recovered/Resolved]
  - Weight decrease neonatal [Recovered/Resolved]
  - Ductus arteriosus stenosis foetal [Recovered/Resolved]
  - Generalised oedema [Recovered/Resolved]
  - Premature baby [Unknown]
  - Cyanosis neonatal [Recovered/Resolved]
  - Right ventricular failure [Recovered/Resolved]
  - Ascites [Recovered/Resolved]
  - Foetal exposure during pregnancy [Unknown]
  - Caesarean section [None]
